FAERS Safety Report 7732090-2 (Version None)
Quarter: 2011Q3

REPORT INFORMATION
  Report Type: 
  Country: None (occurrence: None)
  Receive Date: 20110906
  Receipt Date: 20110804
  Transmission Date: 20111222
  Serious: No
  Sender: FDA-Public Use
  Company Number: US-AMGEN-USASP2011031826

PATIENT
  Age: 58 Year
  Sex: Female
  Weight: 55.329 kg

DRUGS (2)
  1. PROLIA [Suspect]
     Indication: OSTEOPOROSIS POSTMENOPAUSAL
     Dosage: 60 MG, Q6MO
     Dates: start: 20110603
  2. MAGNESIUM HYDROXIDE TAB [Suspect]

REACTIONS (9)
  - NECK PAIN [None]
  - HEADACHE [None]
  - MUSCULOSKELETAL PAIN [None]
  - PYREXIA [None]
  - MYALGIA [None]
  - ADVERSE DRUG REACTION [None]
  - ABDOMINAL PAIN UPPER [None]
  - NAUSEA [None]
  - URINARY TRACT INFECTION [None]
